FAERS Safety Report 25156905 (Version 1)
Quarter: 2025Q2

REPORT INFORMATION
  Report Type: Spontaneous
  Country: NL (occurrence: NL)
  Receive Date: 20250403
  Receipt Date: 20250403
  Transmission Date: 20250716
  Serious: Yes (Other)
  Sender: ALNYLAM PHARMACEUTICALS
  Company Number: NL-ALNYLAM PHARMACEUTICALS, INC.-ALN-2025-002125

PATIENT

DRUGS (1)
  1. OXLUMO [Suspect]
     Active Substance: LUMASIRAN
     Indication: Primary hyperoxaluria
     Route: 065

REACTIONS (3)
  - Crystal nephropathy [Unknown]
  - Renal transplant [Unknown]
  - Laboratory test abnormal [Unknown]
